FAERS Safety Report 9624113 (Version 1)
Quarter: 2013Q4

REPORT INFORMATION
  Report Type: Spontaneous
  Country: US (occurrence: US)
  Receive Date: 20131015
  Receipt Date: 20131015
  Transmission Date: 20140711
  Serious: No
  Sender: FDA-Public Use
  Company Number: US-TARO-2013P1017586

PATIENT
  Age: 9 Year
  Sex: Female

DRUGS (1)
  1. HYDROCORTISONE VALERATE OINTMENT 0.2% [Suspect]
     Indication: RASH

REACTIONS (3)
  - Tinea infection [Not Recovered/Not Resolved]
  - Drug ineffective [Not Recovered/Not Resolved]
  - Drug administered to patient of inappropriate age [Not Recovered/Not Resolved]
